FAERS Safety Report 16075977 (Version 1)
Quarter: 2019Q1

REPORT INFORMATION
  Report Type: Spontaneous
  Country: GB (occurrence: GB)
  Receive Date: 20190315
  Receipt Date: 20190315
  Transmission Date: 20190418
  Serious: Yes (Disabling, Other)
  Sender: FDA-Public Use
  Company Number: GB-TEVA-2019-GB-1023879

PATIENT
  Age: 26 Year
  Sex: Female
  Weight: 62 kg

DRUGS (6)
  1. CIPROFLOXACIN HYDROCHLORIDE. [Suspect]
     Active Substance: CIPROFLOXACIN HYDROCHLORIDE
     Indication: URINARY TRACT INFECTION
     Route: 048
     Dates: start: 20190206, end: 20190208
  2. PARACETAMOL [Concomitant]
     Active Substance: ACETAMINOPHEN
  3. NORETHISTERONE [Concomitant]
     Active Substance: NORETHINDRONE
  4. VITAMIN D [Concomitant]
     Active Substance: CHOLECALCIFEROL
  5. CO-AMOXICLAV [Concomitant]
     Active Substance: AMOXICILLIN\CLAVULANATE POTASSIUM
  6. NAPROXEN. [Concomitant]
     Active Substance: NAPROXEN

REACTIONS (9)
  - Anxiety [Recovered/Resolved with Sequelae]
  - Malaise [Recovered/Resolved]
  - Chills [Recovered/Resolved]
  - Suicidal ideation [Recovered/Resolved]
  - Muscle twitching [Not Recovered/Not Resolved]
  - Tendon pain [Not Recovered/Not Resolved]
  - Arthralgia [Not Recovered/Not Resolved]
  - Fatigue [Not Recovered/Not Resolved]
  - Insomnia [Recovered/Resolved]

NARRATIVE: CASE EVENT DATE: 20190207
